FAERS Safety Report 7692713-3 (Version None)
Quarter: 2011Q3

REPORT INFORMATION
  Report Type: 
  Country: None (occurrence: None)
  Receive Date: 20110819
  Receipt Date: 20110816
  Transmission Date: 20111222
  Serious: No
  Sender: FDA-Public Use
  Company Number: US-PFIZER INC-2011189346

PATIENT
  Sex: Female

DRUGS (2)
  1. PAXIL [Suspect]
     Dosage: UNK
  2. GEODON [Suspect]
     Dosage: 80 MG, UNK

REACTIONS (1)
  - WEIGHT LOSS POOR [None]
